FAERS Safety Report 9993323 (Version 3)
Quarter: 2014Q1

REPORT INFORMATION
  Report Type: Spontaneous
  Country: BE (occurrence: BE)
  Receive Date: 20140310
  Receipt Date: 20140320
  Transmission Date: 20141002
  Serious: Yes (Other)
  Sender: FDA-Public Use
  Company Number: BE-ELI_LILLY_AND_COMPANY-BE201403000907

PATIENT
  Age: 76 Year
  Sex: Male
  Weight: 64 kg

DRUGS (2)
  1. GEMZAR [Suspect]
     Indication: CHOLANGIOCARCINOMA
     Dosage: 1000 MG/M2, CYCLICAL
     Route: 042
     Dates: start: 20131231, end: 20140107
  2. CISPLATINUM [Concomitant]
     Indication: CHOLANGIOCARCINOMA

REACTIONS (4)
  - Vena cava thrombosis [Recovered/Resolved]
  - Paraneoplastic syndrome [Unknown]
  - Malignant neoplasm progression [Unknown]
  - Oedema peripheral [Unknown]
